FAERS Safety Report 7532588-6 (Version None)
Quarter: 2011Q2

REPORT INFORMATION
  Report Type: 
  Country: None (occurrence: None)
  Receive Date: 20110526
  Receipt Date: 20110523
  Transmission Date: 20111010
  Serious: Yes (Hospitalization)
  Sender: FDA-Public Use
  Company Number: 2011028412

PATIENT
  Age: 7 Year
  Sex: Male
  Weight: 74 kg

DRUGS (17)
  1. PREDNISONE [Concomitant]
  2. XOPENEX [Concomitant]
  3. ACETAMINOPHEN [Concomitant]
  4. ALBUTEROL SULF HFA (SALBUTAMOL SULFATE) [Concomitant]
  5. HIZENTRA [Suspect]
  6. FLOVENT HFA (FLUTICASONE PROPIONATE) [Concomitant]
  7. HYPER-SAL (SODIUM CHLORIDE) [Concomitant]
  8. SULFAMETHOXAZOLE-TMP SUSPENSION (SULFAMETHOXAZOLE) [Concomitant]
  9. IBUPROFEN [Concomitant]
  10. HIZENTRA [Suspect]
     Indication: BRONCHIECTASIS
     Dosage: SEE IMAGE
     Route: 058
     Dates: start: 20110421
  11. HIZENTRA [Suspect]
     Indication: IMMUNODEFICIENCY
     Dosage: SEE IMAGE
     Route: 058
     Dates: start: 20110421
  12. HIZENTRA [Suspect]
     Indication: BRONCHIECTASIS
     Dosage: SEE IMAGE
     Route: 058
     Dates: start: 20101112
  13. HIZENTRA [Suspect]
     Indication: IMMUNODEFICIENCY
     Dosage: SEE IMAGE
     Route: 058
     Dates: start: 20101112
  14. HIZENTRA [Suspect]
     Indication: BRONCHIECTASIS
     Dosage: SEE IMAGE
     Route: 058
     Dates: start: 20110429
  15. HIZENTRA [Suspect]
     Indication: IMMUNODEFICIENCY
     Dosage: SEE IMAGE
     Route: 058
     Dates: start: 20110429
  16. SINGULAIR [Concomitant]
  17. PREVACID [Concomitant]

REACTIONS (1)
  - PNEUMONIA [None]
